FAERS Safety Report 24422495 (Version 1)
Quarter: 2024Q4

REPORT INFORMATION
  Report Type: Spontaneous
  Country: BR (occurrence: BR)
  Receive Date: 20241010
  Receipt Date: 20241010
  Transmission Date: 20250115
  Serious: Yes (Death, Hospitalization)
  Sender: BAYER
  Company Number: BR-BAYER-2024A140850

PATIENT
  Age: 46 Year
  Sex: Female

DRUGS (1)
  1. ADEMPAS [Suspect]
     Active Substance: RIOCIGUAT
     Indication: Pulmonary arterial hypertension
     Dosage: 2.5 MG
     Route: 048
     Dates: start: 20190121, end: 20240909

REACTIONS (2)
  - Pulmonary hypertension [None]
  - Death [Fatal]

NARRATIVE: CASE EVENT DATE: 20240909
